FAERS Safety Report 4390623-0 (Version None)
Quarter: 2004Q2

REPORT INFORMATION
  Report Type: 
  Country: None (occurrence: None)
  Receive Date: 20040628
  Receipt Date: 20040615
  Transmission Date: 20050107
  Serious: Yes (Hospitalization, Other)
  Sender: FDA-Public Use
  Company Number: 2004040227

PATIENT
  Age: 65 Year
  Sex: Female
  Weight: 70.3075 kg

DRUGS (2)
  1. LIPITOR [Suspect]
     Indication: BLOOD CHOLESTEROL INCREASED
     Dosage: 10 MG (10 MG, 1 IN 1 D), ORAL
     Route: 048
  2. GEFITINIB (GEFITINIB) [Suspect]
     Indication: LUNG NEOPLASM MALIGNANT
     Dates: start: 20021101, end: 20040101

REACTIONS (5)
  - APHASIA [None]
  - DYSPHAGIA [None]
  - GASTROOESOPHAGEAL REFLUX DISEASE [None]
  - HIATUS HERNIA [None]
  - LUNG NEOPLASM MALIGNANT [None]
